FAERS Safety Report 16887526 (Version 1)
Quarter: 2019Q4

REPORT INFORMATION
  Report Type: Report from Study
  Country: US (occurrence: US)
  Receive Date: 20191005
  Receipt Date: 20191005
  Transmission Date: 20200122
  Serious: Yes (Hospitalization)
  Sender: FDA-Public Use
  Company Number: US-ROCHE-2340161

PATIENT
  Age: 68 Year
  Sex: Female
  Weight: 62.6 kg

DRUGS (3)
  1. BEVACIZUMAB. [Suspect]
     Active Substance: BEVACIZUMAB
     Indication: OVARIAN CANCER
     Dosage: MOST RECENT DOSE OF 17/APR/2019?10 MG/KG IV OVER 90 MINUTES ON DAYS 1 AND 15
     Route: 042
     Dates: start: 20190304
  2. PEGYLATED LIPOSOMAL DOXORUBICIN [Suspect]
     Active Substance: DOXORUBICIN
     Indication: OVARIAN CANCER
     Dosage: MOST RECENT DOSE OF 04/MAR/2019?40 MG/M2 IV OVER 1 HOUR ON DAY 1
     Route: 065
     Dates: start: 20190304
  3. ATEZOLIZUMAB. [Suspect]
     Active Substance: ATEZOLIZUMAB
     Indication: OVARIAN CANCER
     Dosage: MOST RECENT DOSE OF 17/APR/2019?800 MG IV OVER 1 HOUR ON DAYS 1 AND 15
     Route: 042
     Dates: start: 20190304

REACTIONS (2)
  - Ileus [Recovered/Resolved]
  - Pyrexia [Recovered/Resolved]

NARRATIVE: CASE EVENT DATE: 20190502
